FAERS Safety Report 6540834-0 (Version None)
Quarter: 2010Q1

REPORT INFORMATION
  Report Type: 
  Country: None (occurrence: None)
  Receive Date: 20100118
  Receipt Date: 20100104
  Transmission Date: 20100710
  Serious: Yes (Other)
  Sender: FDA-Public Use
  Company Number: PHHY2010CA00474

PATIENT
  Sex: Male

DRUGS (4)
  1. DIOVAN [Suspect]
     Indication: HYPERTENSION
     Dosage: 80 MG FOR ONE MONTH
     Route: 048
  2. DIOVAN [Suspect]
     Dosage: 160 MG, UNK
     Route: 048
  3. VITAMIN E [Concomitant]
     Dosage: 400 U, UNK
  4. AUBEPINE [Concomitant]
     Dosage: UNK

REACTIONS (2)
  - HYPOKINESIA [None]
  - PARAESTHESIA [None]
